FAERS Safety Report 13409655 (Version 1)
Quarter: 2017Q2

REPORT INFORMATION
  Report Type: Spontaneous
  Country: US (occurrence: US)
  Receive Date: 20170406
  Receipt Date: 20170406
  Transmission Date: 20170830
  Serious: Yes (Other)
  Sender: FDA-Public Use
  Company Number: None

PATIENT
  Sex: Female

DRUGS (1)
  1. HEPARIN SODIUM. [Suspect]
     Active Substance: HEPARIN SODIUM

REACTIONS (9)
  - Coronary artery bypass [None]
  - Gangrene [None]
  - Postoperative wound infection [None]
  - Hand amputation [None]
  - Foot amputation [None]
  - Drug effect decreased [None]
  - Post procedural sepsis [None]
  - Heparin-induced thrombocytopenia [None]
  - Leg amputation [None]
